FAERS Safety Report 19567408 (Version 1)
Quarter: 2021Q3

REPORT INFORMATION
  Report Type: Spontaneous
  Country: AT (occurrence: AT)
  Receive Date: 20210716
  Receipt Date: 20210716
  Transmission Date: 20211014
  Serious: Yes (Other)
  Sender: FDA-Public Use
  Company Number: AT-UCBSA-2021033340

PATIENT
  Age: 45 Year
  Sex: Male

DRUGS (11)
  1. OXCARBAZEPINE. [Suspect]
     Active Substance: OXCARBAZEPINE
     Indication: SEIZURE
     Dosage: UNKNOWN DOSE AND FREQUENCY
  2. PERAMPANEL [Suspect]
     Active Substance: PERAMPANEL
     Indication: SEIZURE
     Dosage: UNKNOWN DOSE AND FREQUENCY
  3. BRIVARACETAM [Suspect]
     Active Substance: BRIVARACETAM
     Indication: SEIZURE
     Dosage: UNKNOWN DOSE AND FREQUENCY
  4. LEVETIRACETAM. [Suspect]
     Active Substance: LEVETIRACETAM
     Indication: SEIZURE
     Dosage: UNKNOWN DOSE AND FREQUENCY
  5. VALPROIC ACID. [Suspect]
     Active Substance: VALPROIC ACID
     Indication: SEIZURE
     Dosage: UNKNOWN DOSE AND FREQUENCY
  6. ESLICARBAZEPINE [Suspect]
     Active Substance: ESLICARBAZEPINE
     Indication: SEIZURE
     Dosage: UNKNOWN DOSE AND FREQUENCY
  7. CARBAMAZEPINE. [Suspect]
     Active Substance: CARBAMAZEPINE
     Indication: SEIZURE
     Dosage: UNKNOWN DOSE AND FREQUENCY
  8. LAMOTRIGINE. [Suspect]
     Active Substance: LAMOTRIGINE
     Indication: SEIZURE
     Dosage: UNKNOWN DOSE AND FREQUENCY
  9. PRIMIDONE. [Suspect]
     Active Substance: PRIMIDONE
     Indication: SEIZURE
     Dosage: UNKNOWN DOSE AND FREQUENCY
  10. LACOSAMIDE. [Suspect]
     Active Substance: LACOSAMIDE
     Indication: SEIZURE
     Dosage: UNKNOWN DOSE AND FREQUENCY
  11. CLOBAZAM. [Suspect]
     Active Substance: CLOBAZAM
     Indication: SEIZURE
     Dosage: UNKNOWN DOSE AND FREQUENCY

REACTIONS (2)
  - Seizure [Unknown]
  - Multiple-drug resistance [Unknown]
